FAERS Safety Report 20728960 (Version 4)
Quarter: 2022Q2

REPORT INFORMATION
  Report Type: Spontaneous
  Country: ES (occurrence: None)
  Receive Date: 20220420
  Receipt Date: 20220519
  Transmission Date: 20220721
  Serious: Yes (Other)
  Sender: FDA-Public Use
  Company Number: ES-ROCHE-3079243

PATIENT
  Age: 68 Year
  Sex: Male
  Weight: 93.7 kg

DRUGS (2)
  1. TECENTRIQ [Suspect]
     Active Substance: ATEZOLIZUMAB
     Indication: Neoplasm malignant
     Route: 041
     Dates: start: 20140912, end: 20220302
  2. TECENTRIQ [Suspect]
     Active Substance: ATEZOLIZUMAB
     Indication: Transitional cell carcinoma
     Dosage: ADMINISTRATION DATE ON 17/NOV/2021, 10/DEC/2021, 31/DEC/2021, 20/JAN/2022, 11/FEB/2022, 02/MAR/2022
     Route: 042
     Dates: start: 20211028

REACTIONS (1)
  - Cutaneous T-cell lymphoma [Recovering/Resolving]

NARRATIVE: CASE EVENT DATE: 20220222
